FAERS Safety Report 9901262 (Version 1)
Quarter: 2014Q1

REPORT INFORMATION
  Report Type: Spontaneous
  Country: FR (occurrence: FR)
  Receive Date: 20140217
  Receipt Date: 20140217
  Transmission Date: 20141002
  Serious: Yes (Hospitalization, Other)
  Sender: FDA-Public Use
  Company Number: FR-009507513-1402FRA004211

PATIENT
  Age: 54 Year
  Sex: Female
  Weight: 46 kg

DRUGS (5)
  1. DIPROSONE [Suspect]
     Indication: PRURITUS
     Dosage: 1 DF, ONCE
     Route: 061
     Dates: start: 20140107
  2. CORTICOSTEROIDS (UNSPECIFIED) [Suspect]
     Indication: PRURITUS
     Dosage: 1 DF, BID
     Dates: start: 20131215, end: 20131225
  3. STROMECTOL [Concomitant]
     Indication: SCAB
     Dosage: 4 DF, QD
     Route: 048
     Dates: start: 20140104
  4. ASCABIOL [Concomitant]
     Indication: SCAB
     Dosage: UNK
     Route: 061
     Dates: start: 20140104
  5. METFORMIN [Concomitant]
     Indication: DIABETES MELLITUS

REACTIONS (4)
  - Diabetic coma [Unknown]
  - Weight decreased [Unknown]
  - Insomnia [Unknown]
  - Acne [Unknown]
